FAERS Safety Report 4627887-1 (Version None)
Quarter: 2005Q2

REPORT INFORMATION
  Report Type: 
  Country: None (occurrence: None)
  Receive Date: 20050401
  Receipt Date: 20050127
  Transmission Date: 20051028
  Serious: Yes (Hospitalization)
  Sender: FDA-Public Use
  Company Number: 2005BI002294

PATIENT
  Age: 45 Year
  Sex: Female
  Weight: 77 kg

DRUGS (3)
  1. NATALIZUMAB [Suspect]
     Indication: MULTIPLE SCLEROSIS
     Dosage: 300 MG; QM; IV
     Route: 042
  2. AVONEX [Concomitant]
  3. IBUPROFEN [Concomitant]

REACTIONS (16)
  - ALANINE AMINOTRANSFERASE INCREASED [None]
  - ASPARTATE AMINOTRANSFERASE INCREASED [None]
  - BLOOD LACTATE DEHYDROGENASE INCREASED [None]
  - BLOOD URINE [None]
  - COLON CANCER [None]
  - DRUG INEFFECTIVE [None]
  - HAEMATOCRIT DECREASED [None]
  - HAEMOGLOBIN DECREASED [None]
  - INFREQUENT BOWEL MOVEMENTS [None]
  - INTESTINAL OBSTRUCTION [None]
  - IRRITABLE BOWEL SYNDROME [None]
  - LYMPHOMA [None]
  - METASTASES TO PERITONEUM [None]
  - PLATELET COUNT INCREASED [None]
  - WEIGHT DECREASED [None]
  - WHITE BLOOD CELL COUNT INCREASED [None]
